FAERS Safety Report 6309976-9 (Version None)
Quarter: 2009Q3

REPORT INFORMATION
  Report Type: 
  Country: None (occurrence: None)
  Receive Date: 20090811
  Receipt Date: 20090803
  Transmission Date: 20100115
  Serious: Yes (Disabling, Other)
  Sender: FDA-Public Use
  Company Number: 09US001172

PATIENT
  Age: 51 Year
  Sex: Female
  Weight: 86.2 kg

DRUGS (6)
  1. PEXEVA [Suspect]
     Indication: ANXIETY
     Dosage: 30 MG, QD, ORAL
     Route: 048
     Dates: start: 20040101
  2. PEXEVA [Suspect]
     Indication: DEPRESSION
     Dosage: 30 MG, QD, ORAL
     Route: 048
     Dates: start: 20040101
  3. LISINOPRIL [Concomitant]
  4. ATENOLOL [Concomitant]
  5. VIVELLE-DOT [Concomitant]
  6. ALCOHOL (ETHANOL) [Concomitant]

REACTIONS (12)
  - BLOOD ALCOHOL INCREASED [None]
  - BLOOD GLUCOSE DECREASED [None]
  - ENDOMETRIOSIS [None]
  - HYPERTENSION [None]
  - HYPOTENSION [None]
  - LOSS OF CONSCIOUSNESS [None]
  - OVARIAN CYST [None]
  - PARAESTHESIA [None]
  - POSTURAL ORTHOSTATIC TACHYCARDIA SYNDROME [None]
  - RETINAL VEIN OCCLUSION [None]
  - TREMOR [None]
  - VISUAL ACUITY REDUCED [None]
